FAERS Safety Report 7713410-1 (Version None)
Quarter: 2011Q3

REPORT INFORMATION
  Report Type: 
  Country: None (occurrence: None)
  Receive Date: 20110826
  Receipt Date: 20110815
  Transmission Date: 20111222
  Serious: Yes (Hospitalization)
  Sender: FDA-Public Use
  Company Number: US-BRISTOL-MYERS SQUIBB COMPANY-15981780

PATIENT
  Age: 60 Year
  Sex: Female
  Weight: 64 kg

DRUGS (22)
  1. NORVASC [Suspect]
     Indication: HYPERTENSION
     Dosage: INCREASED TO 5MG DAILY :1997-UNK AND THEN FUTHERLY INCREASED TO 5MG TWICE A DAY:2010-ONG
     Route: 048
     Dates: start: 19950101
  2. DILANTIN [Suspect]
     Dates: start: 19960101
  3. CLONIDINE [Concomitant]
     Indication: HYPERTENSION
     Dosage: TABLET
  4. CARDIZEM [Suspect]
     Dosage: PROLONGED RELEASE TABLET
  5. BACTRIM [Suspect]
  6. LEVOTHYROXINE SODIUM [Concomitant]
  7. HYDROCHLOROTHIAZIDE [Suspect]
  8. ATACAND [Suspect]
  9. XANAX [Suspect]
     Dosage: 1DF IS 1/2 TAB
  10. COZAAR [Suspect]
  11. DEPAKOTE [Suspect]
     Indication: CONVULSION
     Dates: start: 19960101
  12. DIOVAN [Suspect]
  13. BENICAR [Suspect]
     Indication: HYPERTENSION
     Dosage: FILM COATED TABLET:4 YRS AGO
     Dates: end: 20070101
  14. MACROBID [Suspect]
  15. LIDOCAINE HYDROCHLORIDE [Suspect]
     Dates: start: 20100513, end: 20100513
  16. CIPROFLOXACIN [Suspect]
  17. REGLAN [Suspect]
  18. BYSTOLIC [Suspect]
  19. AVAPRO [Suspect]
     Indication: HYPERTENSION
  20. LISINOPRIL [Suspect]
  21. FUROSEMIDE [Suspect]
  22. LEVAQUIN [Suspect]

REACTIONS (9)
  - PALPITATIONS [None]
  - INGROWING NAIL [None]
  - FULL BLOOD COUNT DECREASED [None]
  - BURNING SENSATION [None]
  - CYSTITIS [None]
  - WEIGHT DECREASED [None]
  - ABDOMINAL DISTENSION [None]
  - BLOOD PRESSURE INCREASED [None]
  - LOSS OF CONSCIOUSNESS [None]
